FAERS Safety Report 8031469-1 (Version None)
Quarter: 2011Q4

REPORT INFORMATION
  Report Type: 
  Country: None (occurrence: None)
  Receive Date: 20111201
  Receipt Date: 20110406
  Transmission Date: 20120403
  Serious: Yes (Other)
  Sender: FDA-Public Use
  Company Number: 275200USA

PATIENT
  Sex: Male

DRUGS (2)
  1. AMOXICILLIN AND CLAVULANATE POTASSIUM [Suspect]
     Indication: PNEUMONIA
  2. METRONIDAZOLE [Concomitant]

REACTIONS (2)
  - GASTROINTESTINAL INFLAMMATION [None]
  - EPIGASTRIC DISCOMFORT [None]
